FAERS Safety Report 11245403 (Version 3)
Quarter: 2016Q3

REPORT INFORMATION
  Report Type: Spontaneous
  Country: US (occurrence: US)
  Receive Date: 20150707
  Receipt Date: 20160815
  Transmission Date: 20161109
  Serious: Yes (Life-Threatening, Other)
  Sender: FDA-Public Use
  Company Number: US-BAYER-2015-367639

PATIENT
  Age: 59 Year
  Sex: Female
  Weight: 64.4 kg

DRUGS (3)
  1. LEVAQUIN [Suspect]
     Active Substance: LEVOFLOXACIN
     Indication: SINUSITIS
  2. AVELOX [Suspect]
     Active Substance: MOXIFLOXACIN HYDROCHLORIDE
     Indication: PNEUMONIA
     Dosage: 400 MG, UNK
     Dates: start: 20101227
  3. LEVAQUIN [Suspect]
     Active Substance: LEVOFLOXACIN
     Indication: BRONCHITIS
     Dosage: 500 MG, UNK
     Dates: start: 20120528

REACTIONS (13)
  - Neuropathy peripheral [None]
  - Cardiovascular disorder [None]
  - Adjustment disorder [None]
  - Pain [None]
  - Musculoskeletal injury [None]
  - Pain in extremity [None]
  - Emotional distress [None]
  - Skin injury [None]
  - Mental disorder [None]
  - Nervous system disorder [None]
  - Neuropathy peripheral [Not Recovered/Not Resolved]
  - Injury [None]
  - Anxiety [None]
